FAERS Safety Report 4854680-7 (Version None)
Quarter: 2005Q4

REPORT INFORMATION
  Report Type: 
  Country: None (occurrence: None)
  Receive Date: 20051215
  Receipt Date: 20050218
  Transmission Date: 20060501
  Serious: Yes (Hospitalization, Other)
  Sender: FDA-Public Use
  Company Number: US-MERCK-0502USA02905

PATIENT
  Age: 66 Year
  Sex: Female
  Weight: 91 kg

DRUGS (62)
  1. VIOXX [Suspect]
     Route: 048
     Dates: start: 20020122, end: 20040826
  2. VIOXX [Suspect]
     Route: 048
     Dates: start: 20010320
  3. FUROSEMIDE [Concomitant]
     Route: 065
  4. LIPITOR [Concomitant]
     Route: 065
  5. AMBIEN [Concomitant]
     Route: 065
  6. MINITRAN [Concomitant]
     Route: 065
  7. TOBRADEX [Concomitant]
     Route: 065
  8. BROMFENEX (NEW FORMULA) [Concomitant]
     Route: 065
  9. COMBIVENT [Concomitant]
     Route: 065
  10. FLONASE [Concomitant]
     Route: 065
  11. ALBUTEROL [Concomitant]
     Route: 065
  12. SEREVENT [Concomitant]
     Route: 065
  13. PREDNISOLONE [Concomitant]
     Route: 065
  14. OCUFLOX [Concomitant]
     Route: 065
  15. ZAROXOLYN [Concomitant]
     Route: 065
  16. METOPROLOL [Concomitant]
     Route: 065
  17. FLOVENT [Concomitant]
     Route: 065
  18. SINGULAIR [Concomitant]
     Route: 065
  19. NITROQUICK [Concomitant]
     Route: 065
  20. ULTRAM [Concomitant]
     Route: 065
  21. FAMVIR [Concomitant]
     Route: 065
  22. KLOR-CON [Concomitant]
     Route: 065
  23. ROXICET [Concomitant]
     Route: 065
  24. PROTONIX [Concomitant]
     Route: 065
  25. PACERONE [Concomitant]
     Route: 065
  26. ACETAMINOPHEN AND OXYCODONE HYDROCHLORIDE [Concomitant]
     Route: 065
  27. CEPHALEXIN [Concomitant]
     Route: 065
  28. TEMAZEPAM [Concomitant]
     Route: 065
  29. ACETAMINOPHEN AND HYDROCODONE BITARTRATE [Concomitant]
     Route: 065
  30. SKELAXIN [Concomitant]
     Route: 065
  31. NEXIUM [Concomitant]
     Route: 065
  32. TRIMOX [Concomitant]
     Route: 065
  33. METHYLPREDNISOLONE [Concomitant]
     Route: 065
  34. NAPROXEN [Concomitant]
     Route: 065
  35. AUGMENTIN [Concomitant]
     Route: 065
  36. DURAGESIC-100 [Concomitant]
     Route: 065
  37. DEXAMETHASONE [Concomitant]
     Route: 065
  38. NYSTATIN USP (PADDOCK) [Concomitant]
     Route: 065
  39. LEVAQUIN [Concomitant]
     Route: 065
  40. TUSSIN DM [Concomitant]
     Route: 065
  41. METOCLOPRAMIDE [Concomitant]
     Route: 065
  42. PHENERGAN TABLETS/SUPPOSITORIES [Concomitant]
     Route: 065
  43. CARAFATE [Concomitant]
     Route: 065
  44. FLOXIN [Concomitant]
     Route: 065
  45. EVOXAC [Concomitant]
     Route: 065
  46. ACETAMINOPHEN AND CODEINE [Concomitant]
     Route: 065
  47. RANITIDINE [Concomitant]
     Route: 065
  48. VEETIDS [Concomitant]
     Route: 065
  49. MYCELEX [Concomitant]
     Route: 065
  50. IBUPROFEN [Concomitant]
     Route: 065
  51. BETOPTIC [Concomitant]
     Route: 065
  52. FLUOROMETHOLONE [Concomitant]
     Route: 065
  53. DIFLUCAN [Concomitant]
     Route: 065
  54. ZOVIRAX [Concomitant]
     Route: 065
  55. AMIBID DM [Concomitant]
     Route: 065
  56. ZITHROMAX [Concomitant]
     Route: 065
  57. TOPROL-XL [Concomitant]
     Route: 065
  58. PREMARIN [Concomitant]
     Route: 065
  59. K-DUR 10 [Concomitant]
     Route: 065
  60. RELAFEN [Concomitant]
     Route: 065
  61. MECLIZINE [Concomitant]
     Route: 065
  62. [THERAPY UNSPECIFIED] [Concomitant]
     Route: 065

REACTIONS (7)
  - ARTHRALGIA [None]
  - CEREBROVASCULAR ACCIDENT [None]
  - INFECTION [None]
  - INTERVERTEBRAL DISC PROTRUSION [None]
  - MYOCARDIAL INFARCTION [None]
  - NEOPLASM MALIGNANT [None]
  - OESOPHAGEAL CARCINOMA [None]
